FAERS Safety Report 15405765 (Version 1)
Quarter: 2018Q3

REPORT INFORMATION
  Report Type: Spontaneous
  Country: ES (occurrence: ES)
  Receive Date: 20180920
  Receipt Date: 20180920
  Transmission Date: 20181010
  Serious: Yes (Hospitalization)
  Sender: FDA-Public Use
  Company Number: ES-AUROBINDO-AUR-APL-2018-046336

PATIENT
  Age: 20 Year
  Sex: Male

DRUGS (1)
  1. PARACETAMOL [Suspect]
     Active Substance: ACETAMINOPHEN
     Indication: PRODUCT USED FOR UNKNOWN INDICATION
     Dosage: 40 GRAM, IN TOTAL
     Route: 048
     Dates: start: 20180524, end: 20180524

REACTIONS (2)
  - Hyperlactacidaemia [Recovered/Resolved]
  - Vomiting [Recovered/Resolved]

NARRATIVE: CASE EVENT DATE: 20180524
